FAERS Safety Report 18456821 (Version 1)
Quarter: 2020Q4

REPORT INFORMATION
  Report Type: Spontaneous
  Country: US (occurrence: US)
  Receive Date: 20201102
  Receipt Date: 20201102
  Transmission Date: 20210114
  Serious: Yes (Other)
  Sender: FDA-Public Use
  Company Number: None

PATIENT
  Age: 86 Year
  Sex: Female
  Weight: 49.9 kg

DRUGS (8)
  1. QUETIAPINE. [Concomitant]
     Active Substance: QUETIAPINE
  2. ALBUTEROL. [Concomitant]
     Active Substance: ALBUTEROL
  3. GABAPENTIN. [Concomitant]
     Active Substance: GABAPENTIN
  4. ERLOTINIB [Suspect]
     Active Substance: ERLOTINIB
     Indication: LUNG NEOPLASM MALIGNANT
     Route: 048
     Dates: start: 20200902, end: 20201102
  5. VICODIN [Concomitant]
     Active Substance: ACETAMINOPHEN\HYDROCODONE BITARTRATE
  6. ARMOUR THYROID [Concomitant]
     Active Substance: THYROID, PORCINE
  7. CARISOPRODOL. [Concomitant]
     Active Substance: CARISOPRODOL
  8. VITAMIN B [Concomitant]
     Active Substance: VITAMIN B

REACTIONS (1)
  - Hospice care [None]

NARRATIVE: CASE EVENT DATE: 20201102
